FAERS Safety Report 10949148 (Version 1)
Quarter: 2015Q1

REPORT INFORMATION
  Report Type: Spontaneous
  Country: GB (occurrence: GB)
  Receive Date: 20150324
  Receipt Date: 20150324
  Transmission Date: 20150721
  Serious: Yes (Hospitalization)
  Sender: FDA-Public Use
  Company Number: GB-TEVA-548600ACC

PATIENT
  Age: 88 Year
  Sex: Male

DRUGS (7)
  1. CO-AMOXICLAV [Suspect]
     Active Substance: AMOXICILLIN\CLAVULANIC ACID
     Indication: PNEUMONIA
     Dosage: 1875 MILLIGRAM DAILY; 500MG/125MG
     Route: 048
     Dates: start: 20121213, end: 20121216
  2. ERTAPENEM [Suspect]
     Active Substance: ERTAPENEM
     Indication: CHOLANGITIS
     Dosage: 1 GRAM DAILY; POWDER FOR SOLUTION FOR INFUSION
     Route: 041
     Dates: start: 20121207, end: 20121209
  3. AMOXICILLIN. [Suspect]
     Active Substance: AMOXICILLIN
     Indication: PNEUMONIA
     Dosage: 1500 MILLIGRAM DAILY; POWDER FOR SOLUTION FOR INJECTION
     Route: 041
     Dates: start: 20121207
  4. TRIMETHOPRIM. [Suspect]
     Active Substance: TRIMETHOPRIM
     Dosage: 400 MILLIGRAM DAILY;
     Route: 048
     Dates: start: 20120821, end: 20120827
  5. LANSOPRAZOLE. [Suspect]
     Active Substance: LANSOPRAZOLE
     Dosage: 30 MILLIGRAM DAILY;
     Route: 048
     Dates: end: 20121227
  6. CEFALEXIN [Suspect]
     Active Substance: CEPHALEXIN
     Indication: URINARY TRACT INFECTION
     Dosage: 750 MILLIGRAM DAILY;
     Route: 048
     Dates: start: 20121204
  7. TAZOCIN [Suspect]
     Active Substance: PIPERACILLIN SODIUM\TAZOBACTAM SODIUM
     Indication: CHOLANGITIS
     Dosage: 13.5 GRAM DAILY; POWDER AND SOLVENT FOR SOLUTION FOR INJECTION
     Route: 042
     Dates: start: 20121210, end: 20121212

REACTIONS (3)
  - Diarrhoea [Unknown]
  - Biliary sepsis [Unknown]
  - Clostridium test positive [Unknown]

NARRATIVE: CASE EVENT DATE: 20121207
